FAERS Safety Report 6189873-2 (Version None)
Quarter: 2009Q2

REPORT INFORMATION
  Report Type: 
  Country: None (occurrence: None)
  Receive Date: 20090512
  Receipt Date: 20090512
  Transmission Date: 20091009
  Serious: Yes (Other)
  Sender: FDA-Public Use
  Company Number: None

PATIENT
  Age: 59 Year
  Sex: Female
  Weight: 56.6996 kg

DRUGS (3)
  1. LATISSE [Suspect]
     Indication: EYELASH THICKENING
     Dosage: 1 DROP ON EACH UPPER EYELID NIGHTLY
     Dates: start: 20090410, end: 20090424
  2. LATISSE [Suspect]
     Indication: EYELASH THICKENING
     Dosage: 1 DROP ON EACH UPPER EYELID NIGHTLY
     Dates: start: 20090427, end: 20090427
  3. . [Concomitant]

REACTIONS (4)
  - HEADACHE [None]
  - INSOMNIA [None]
  - NECK PAIN [None]
  - SINUS DISORDER [None]
